FAERS Safety Report 8180541-4 (Version None)
Quarter: 2012Q1

REPORT INFORMATION
  Report Type: 
  Country: None (occurrence: None)
  Receive Date: 20120302
  Receipt Date: 20120222
  Transmission Date: 20120608
  Serious: Yes (Hospitalization)
  Sender: FDA-Public Use
  Company Number: DE-JNJFOC-20120210817

PATIENT
  Age: 25 Year
  Sex: Female

DRUGS (4)
  1. RISPERDAL [Suspect]
     Route: 048
     Dates: start: 20111010, end: 20111014
  2. RISPERDAL [Suspect]
     Route: 048
     Dates: start: 20111015, end: 20111018
  3. RISPERDAL [Suspect]
     Indication: SCHIZOPHRENIA, PARANOID TYPE
     Route: 048
     Dates: start: 20111019, end: 20111022
  4. RISPERDAL [Suspect]
     Dosage: 1-5 MG DAILY
     Route: 048
     Dates: start: 20110601, end: 20111009

REACTIONS (2)
  - GALACTORRHOEA [None]
  - POST-TRAUMATIC STRESS DISORDER [None]
